FAERS Safety Report 21812216 (Version 3)
Quarter: 2023Q1

REPORT INFORMATION
  Report Type: Spontaneous
  Country: PL (occurrence: PL)
  Receive Date: 20230103
  Receipt Date: 20230309
  Transmission Date: 20230417
  Serious: Yes (Hospitalization, Disabling, Other)
  Sender: FDA-Public Use
  Company Number: PL-SERVIER-S22008845

PATIENT
  Age: 61 Year
  Sex: Male

DRUGS (11)
  1. DEXILANT [Suspect]
     Active Substance: DEXLANSOPRAZOLE
     Indication: Gastritis
     Dosage: 60 MILLIGRAM, QD
     Route: 048
     Dates: start: 20221208
  2. SULPIRIDE [Suspect]
     Active Substance: SULPIRIDE
     Indication: Product used for unknown indication
     Dosage: UNK
     Route: 048
     Dates: start: 202210, end: 20221121
  3. SULPIRIDE [Suspect]
     Active Substance: SULPIRIDE
     Dosage: 50 MILLIGRAM, BID
     Route: 048
     Dates: start: 20221223
  4. ALPRAZOLAM [Suspect]
     Active Substance: ALPRAZOLAM
     Indication: Anxiety
     Dosage: 1 MILLIGRAM, BID
     Route: 065
     Dates: start: 202212
  5. PERAZINE [Suspect]
     Active Substance: PERAZINE
     Indication: Depression
     Dosage: UNK UNK, QD
     Route: 048
     Dates: start: 202108, end: 20220830
  6. TIANEPTINE SODIUM [Suspect]
     Active Substance: TIANEPTINE SODIUM
     Indication: Depression
     Dosage: 12.5 MILLIGRAM, TID
     Route: 048
     Dates: start: 202203, end: 20221222
  7. NEBIVOLOL HYDROCHLORIDE [Concomitant]
     Active Substance: NEBIVOLOL HYDROCHLORIDE
     Indication: Hypertension
     Dosage: 5 MILLIGRAM, QD
     Route: 048
  8. RAMIPRIL [Concomitant]
     Active Substance: RAMIPRIL
     Indication: Hypertension
     Dosage: 5 MILLIGRAM, QD
     Route: 048
     Dates: start: 2016
  9. ROSUVASTATIN [Concomitant]
     Active Substance: ROSUVASTATIN
     Indication: Hypercholesterolaemia
     Dosage: 10 MILLIGRAM, QD
     Route: 065
     Dates: start: 2016
  10. QUETIAPINE FUMARATE [Concomitant]
     Active Substance: QUETIAPINE FUMARATE
     Indication: Product used for unknown indication
     Dosage: UNK UNK, TID
     Route: 065
     Dates: start: 202209, end: 202210
  11. ACARD [Concomitant]
     Indication: Ischaemic heart disease prophylaxis
     Dosage: 75 MILLIGRAM, QD
     Route: 048
     Dates: start: 2016

REACTIONS (12)
  - Somnolence [Recovered/Resolved]
  - Anxiety [Recovering/Resolving]
  - Nightmare [Recovering/Resolving]
  - Mobility decreased [Recovering/Resolving]
  - Hallucination [Recovered/Resolved]
  - Dyskinesia [Recovering/Resolving]
  - Abdominal pain [Not Recovered/Not Resolved]
  - Asthenia [Recovered/Resolved]
  - Gastritis [Not Recovered/Not Resolved]
  - Hyperhidrosis [Recovering/Resolving]
  - Tremor [Recovering/Resolving]
  - Gait disturbance [Recovering/Resolving]

NARRATIVE: CASE EVENT DATE: 20221208
